FAERS Safety Report 18758892 (Version 1)
Quarter: 2021Q1

REPORT INFORMATION
  Report Type: Spontaneous
  Country: US (occurrence: US)
  Receive Date: 20210120
  Receipt Date: 20210120
  Transmission Date: 20210419
  Serious: Yes (Life-Threatening, Other)
  Sender: FDA-Public Use
  Company Number: US-AUROBINDO-AUR-APL-2020-017416

PATIENT
  Age: 19 Year
  Sex: Male
  Weight: 86.18 kg

DRUGS (5)
  1. CLOZAPINE 200 MG TABLET USP [Suspect]
     Active Substance: CLOZAPINE
     Indication: SCHIZOAFFECTIVE DISORDER
     Dosage: 400 MILLIGRAM (EVERY NIGHT AT BEDTIME)
     Route: 048
     Dates: start: 20191120, end: 20200401
  2. LORAZEPAM. [Concomitant]
     Active Substance: LORAZEPAM
     Indication: ANXIETY
     Dosage: 1 MILLIGRAM, OCCASIONALLY
     Route: 065
  3. LITHIUM. [Concomitant]
     Active Substance: LITHIUM
     Indication: SCHIZOAFFECTIVE DISORDER
     Dosage: UNK
     Route: 065
  4. RISPERIDONE. [Concomitant]
     Active Substance: RISPERIDONE
     Indication: SCHIZOAFFECTIVE DISORDER
     Dosage: UNK
     Route: 065
  5. LORAZEPAM. [Concomitant]
     Active Substance: LORAZEPAM
     Indication: AGITATION

REACTIONS (1)
  - Neutropenia [Recovered/Resolved]

NARRATIVE: CASE EVENT DATE: 20200331
